FAERS Safety Report 6559907-1 (Version None)
Quarter: 2010Q1

REPORT INFORMATION
  Report Type: 
  Country: None (occurrence: None)
  Receive Date: 20100129
  Receipt Date: 20090910
  Transmission Date: 20100710
  Serious: No
  Sender: FDA-Public Use
  Company Number: US-ABBOTT-09P-163-0597067-00

PATIENT
  Sex: Female
  Weight: 62.652 kg

DRUGS (2)
  1. HUMIRA [Suspect]
     Indication: PSORIASIS
     Route: 058
     Dates: start: 20090501
  2. VITAMINS [Concomitant]
     Indication: VITAMIN SUPPLEMENTATION

REACTIONS (2)
  - LIP SWELLING [None]
  - ORAL MUCOSAL DISCOLOURATION [None]
